FAERS Safety Report 5881714-3 (Version None)
Quarter: 2008Q3

REPORT INFORMATION
  Report Type: 
  Country: None (occurrence: None)
  Receive Date: 20080912
  Receipt Date: 20080806
  Transmission Date: 20090109
  Serious: No
  Sender: FDA-Public Use
  Company Number: US-ABBOTT-08P-163-0461806-00

PATIENT
  Sex: Male
  Weight: 74.91 kg

DRUGS (15)
  1. HUMIRA [Suspect]
     Indication: CROHN'S DISEASE
     Dosage: STARTER DOSE
     Route: 058
     Dates: start: 20080620, end: 20080620
  2. HUMIRA [Suspect]
     Route: 058
  3. HUMIRA [Suspect]
     Route: 058
  4. PREDNISONE TAB [Concomitant]
     Indication: CROHN'S DISEASE
     Dosage: DAILY
     Route: 048
     Dates: start: 20080601
  5. PREDNISONE TAB [Concomitant]
     Dosage: DAILY
     Route: 048
  6. PREDNISONE TAB [Concomitant]
     Route: 058
  7. MESALAMINE [Concomitant]
     Indication: CROHN'S DISEASE
     Dosage: 3  400 MG TABLETS, 3 X DAILY
     Route: 048
  8. INSULIN-LENTIS [Concomitant]
     Indication: DIABETES MELLITUS
     Dosage: 25-50 UNITS DAILY
     Route: 058
  9. CALCIUM SUPPLEMENT [Concomitant]
     Indication: MINERAL SUPPLEMENTATION
     Dosage: 1 PILL DAILY/1 PILL ONCE WEEKLY
     Route: 048
  10. CALCIUM [Concomitant]
     Indication: MINERAL SUPPLEMENTATION
     Route: 048
  11. TUMS [Concomitant]
     Indication: SUPPLEMENTATION THERAPY
     Dosage: 8-9 TABS DAILY
     Route: 048
  12. AZATHIOPRINE [Concomitant]
     Indication: CROHN'S DISEASE
     Route: 048
  13. METOPROLOL TARTRATE [Concomitant]
     Indication: HYPERTENSION
     Route: 048
     Dates: start: 20080601
  14. ESOMETRAZOLE [Concomitant]
     Indication: GASTROOESOPHAGEAL REFLUX DISEASE
     Route: 048
  15. ZOLPIDEM TARTRATE [Concomitant]
     Indication: SLEEP DISORDER THERAPY
     Dosage: AT NIGHT
     Route: 048
     Dates: start: 20080601

REACTIONS (1)
  - TREMOR [None]
